FAERS Safety Report 24953732 (Version 2)
Quarter: 2025Q1

REPORT INFORMATION
  Report Type: Spontaneous
  Country: FR (occurrence: FR)
  Receive Date: 20250211
  Receipt Date: 20250224
  Transmission Date: 20250409
  Serious: Yes (Other)
  Sender: JOHNSON AND JOHNSON
  Company Number: FR-JNJFOC-20250209593

PATIENT
  Age: 80 Year
  Sex: Male

DRUGS (4)
  1. TREMFYA [Suspect]
     Active Substance: GUSELKUMAB
     Indication: Psoriasis
     Route: 065
     Dates: start: 20190323
  2. TREMFYA [Suspect]
     Active Substance: GUSELKUMAB
  3. TREMFYA [Suspect]
     Active Substance: GUSELKUMAB
  4. GONADORELIN [Concomitant]
     Active Substance: GONADORELIN

REACTIONS (2)
  - Prostate cancer [Unknown]
  - Psoriasis [Unknown]

NARRATIVE: CASE EVENT DATE: 20250201
